FAERS Safety Report 7429083-1 (Version None)
Quarter: 2011Q2

REPORT INFORMATION
  Report Type: 
  Country: None (occurrence: None)
  Receive Date: 20110421
  Receipt Date: 20110414
  Transmission Date: 20111010
  Serious: Yes (Other)
  Sender: FDA-Public Use
  Company Number: GB-ROCHE-771752

PATIENT
  Sex: Male

DRUGS (1)
  1. ISOTRETINOIN [Suspect]
     Dosage: 3 WEEKS- THERAPY DURATION, DRUG WITHDRAWN
     Route: 048

REACTIONS (4)
  - ERYTHEMA [None]
  - BLOOD CREATINE PHOSPHOKINASE [None]
  - TENDERNESS [None]
  - SWELLING [None]
